FAERS Safety Report 8314078-6 (Version None)
Quarter: 2012Q2

REPORT INFORMATION
  Report Type: 
  Country: None (occurrence: None)
  Receive Date: 20120426
  Receipt Date: 20120417
  Transmission Date: 20120825
  Serious: Yes (Hospitalization)
  Sender: FDA-Public Use
  Company Number: US-ELI_LILLY_AND_COMPANY-US201204006770

PATIENT
  Age: 70 Year
  Sex: Female

DRUGS (1)
  1. ALIMTA [Suspect]
     Dosage: UNK, UNKNOWN

REACTIONS (5)
  - DYSPNOEA [None]
  - HERPES ZOSTER [None]
  - BLOOD COUNT ABNORMAL [None]
  - HYPOTENSION [None]
  - STAPHYLOCOCCAL INFECTION [None]
